FAERS Safety Report 7433585-1 (Version None)
Quarter: 2011Q2

REPORT INFORMATION
  Report Type: 
  Country: None (occurrence: None)
  Receive Date: 20110422
  Receipt Date: 20110412
  Transmission Date: 20111010
  Serious: Yes (Hospitalization)
  Sender: FDA-Public Use
  Company Number: CN-GENENTECH-316803

PATIENT
  Age: 22 Year

DRUGS (2)
  1. CHOP REGIMEN [Concomitant]
     Indication: B-CELL LYMPHOMA
     Dosage: UNK
  2. MABTHERA [Suspect]
     Indication: B-CELL LYMPHOMA
     Dosage: 375 MG/M2, Q3W
     Route: 065

REACTIONS (2)
  - ASPARTATE AMINOTRANSFERASE INCREASED [None]
  - ALANINE AMINOTRANSFERASE INCREASED [None]
